FAERS Safety Report 8277926-4 (Version None)
Quarter: 2012Q2

REPORT INFORMATION
  Report Type: 
  Country: None (occurrence: None)
  Receive Date: 20120412
  Receipt Date: 20120402
  Transmission Date: 20120825
  Serious: Yes (Hospitalization)
  Sender: FDA-Public Use
  Company Number: US-ELI_LILLY_AND_COMPANY-US201204001157

PATIENT
  Sex: Female

DRUGS (21)
  1. CALCIUM CARBONATE [Concomitant]
  2. SINGULAIR [Concomitant]
     Dosage: 1 DF, QD
  3. BENADRYL [Concomitant]
  4. FOLIC ACID [Concomitant]
     Dosage: 800 UG, QD
  5. FIBER [Concomitant]
  6. SOMA [Concomitant]
     Dosage: 350 MG, EVERY 6 HRS
  7. MELOXICAM [Concomitant]
  8. AZELASTINE HYDROCHLORIDE [Concomitant]
     Dosage: 1 DF, BID
  9. PROCARDIA                          /00340701/ [Concomitant]
     Dosage: 10 MG, BID
  10. FLONASE [Concomitant]
     Dosage: 2 DF, BID
  11. ALBUTEROL [Concomitant]
  12. VICODIN [Concomitant]
     Dosage: UNK, EVERY 6 HRS
  13. SOMA [Concomitant]
     Dosage: 350 MG, PRN
  14. CIPROFLOXACIN HCL [Concomitant]
     Indication: INFECTION
     Dosage: 500 MG, PRN
  15. STOOL SOFTENER [Concomitant]
  16. VITAMIN B-12 [Concomitant]
     Dosage: 2500 MG, QD
  17. FORTEO [Suspect]
     Indication: OSTEOPOROSIS
     Dosage: 20 UG, QD
     Route: 065
     Dates: start: 20100813
  18. ADVAIR DISKUS 100/50 [Concomitant]
     Dosage: UNK UNK, PRN
  19. ZYRTEC [Concomitant]
     Dosage: 10 MG, QOD
  20. OMEPRAZOLE [Concomitant]
     Dosage: 20 MG, EVERY 6 HRS
  21. ASTELIN [Concomitant]
     Dosage: 2 DF, BID

REACTIONS (5)
  - HERNIA [None]
  - CATARACT [None]
  - MUSCLE SPASMS [None]
  - KNEE ARTHROPLASTY [None]
  - VISUAL FIELD DEFECT [None]
